FAERS Safety Report 10515534 (Version 1)
Quarter: 2014Q4

REPORT INFORMATION
  Report Type: Spontaneous
  Country: KR (occurrence: None)
  Receive Date: 20141009
  Receipt Date: 20141009
  Transmission Date: 20150528
  Serious: Yes (Hospitalization)
  Sender: FDA-Public Use
  Company Number: 2014100004

PATIENT
  Age: 56 Year
  Sex: Female
  Weight: 73 kg

DRUGS (1)
  1. MESALAMINE. [Suspect]
     Active Substance: MESALAMINE
     Indication: COLITIS ULCERATIVE

REACTIONS (6)
  - Nausea [None]
  - Oedema peripheral [None]
  - Vomiting [None]
  - Abdominal distension [None]
  - Diarrhoea [None]
  - Epigastric discomfort [None]
